FAERS Safety Report 5600178-8 (Version None)
Quarter: 2008Q1

REPORT INFORMATION
  Report Type: 
  Country: None (occurrence: None)
  Receive Date: 20080123
  Receipt Date: 20080111
  Transmission Date: 20080703
  Serious: Yes (Disabling)
  Sender: FDA-Public Use
  Company Number: IN-GENENTECH-254553

PATIENT
  Age: 83 Year
  Sex: Male

DRUGS (4)
  1. MABTHERA [Suspect]
     Indication: NON-HODGKIN'S LYMPHOMA
     Dosage: 500 MG, UNK
     Route: 042
     Dates: start: 20080108, end: 20080108
  2. CYCLOPHOSPHAMIDE [Suspect]
     Indication: NON-HODGKIN'S LYMPHOMA
     Dosage: 600 MG, UNK
     Route: 042
     Dates: start: 20080108, end: 20080108
  3. VINCRISTINE [Suspect]
     Dosage: 2 MG, UNK
     Route: 042
     Dates: start: 20080108, end: 20080108
  4. PREDNISOLONE [Suspect]
     Indication: NON-HODGKIN'S LYMPHOMA
     Dosage: 100 MG, UNK
     Dates: start: 20080108, end: 20080112

REACTIONS (2)
  - CONVULSION [None]
  - JAUNDICE CHOLESTATIC [None]
